FAERS Safety Report 11619072 (Version 17)
Quarter: 2018Q3

REPORT INFORMATION
  Report Type: Spontaneous
  Country: CA (occurrence: CA)
  Receive Date: 20151012
  Receipt Date: 20180928
  Transmission Date: 20181010
  Serious: Yes (Hospitalization, Other)
  Sender: FDA-Public Use
  Company Number: CA-ROCHE-1644330

PATIENT
  Age: 47 Year
  Sex: Female
  Weight: 95 kg

DRUGS (13)
  1. XOLAIR [Suspect]
     Active Substance: OMALIZUMAB
     Route: 058
     Dates: start: 20180625
  2. PREDNISONE. [Suspect]
     Active Substance: PREDNISONE
     Route: 065
  3. XOLAIR [Suspect]
     Active Substance: OMALIZUMAB
     Route: 058
     Dates: start: 20170105
  4. XOLAIR [Suspect]
     Active Substance: OMALIZUMAB
     Route: 058
     Dates: start: 20170131
  5. XOLAIR [Suspect]
     Active Substance: OMALIZUMAB
     Route: 058
     Dates: start: 20170831
  6. XOLAIR [Suspect]
     Active Substance: OMALIZUMAB
     Route: 058
     Dates: start: 20171221
  7. XOLAIR [Suspect]
     Active Substance: OMALIZUMAB
     Indication: ASTHMA
     Route: 058
     Dates: start: 20131111
  8. XOLAIR [Suspect]
     Active Substance: OMALIZUMAB
     Route: 058
     Dates: start: 20170410
  9. XOLAIR [Suspect]
     Active Substance: OMALIZUMAB
     Route: 058
     Dates: start: 20170706
  10. XOLAIR [Suspect]
     Active Substance: OMALIZUMAB
     Route: 058
     Dates: start: 20170302
  11. PREDNISONE. [Suspect]
     Active Substance: PREDNISONE
     Indication: PRODUCT USED FOR UNKNOWN INDICATION
     Route: 065
  12. XOLAIR [Suspect]
     Active Substance: OMALIZUMAB
     Route: 058
     Dates: start: 20170803
  13. MOXIFLOXACIN. [Suspect]
     Active Substance: MOXIFLOXACIN
     Indication: DYSPNOEA
     Route: 065

REACTIONS (23)
  - Weight increased [Unknown]
  - Condition aggravated [Unknown]
  - Road traffic accident [Unknown]
  - Forced expiratory volume decreased [Unknown]
  - Fall [Unknown]
  - Drug ineffective [Unknown]
  - Wheezing [Unknown]
  - Pneumonia [Recovered/Resolved]
  - Insomnia [Unknown]
  - Haemoptysis [Recovered/Resolved]
  - Dyspnoea [Unknown]
  - Obstructive airways disorder [Unknown]
  - Respiratory disorder [Recovering/Resolving]
  - Lower respiratory tract infection [Recovering/Resolving]
  - Adverse drug reaction [Unknown]
  - Laryngitis [Unknown]
  - Myalgia [Unknown]
  - Joint injury [Unknown]
  - Asthma [Unknown]
  - Cough [Unknown]
  - Chest discomfort [Unknown]
  - Cataract [Unknown]
  - Head injury [Unknown]

NARRATIVE: CASE EVENT DATE: 201410
